FAERS Safety Report 8477180-4 (Version None)
Quarter: 2012Q2

REPORT INFORMATION
  Report Type: 
  Country: None (occurrence: None)
  Receive Date: 20120625
  Receipt Date: 20120625
  Transmission Date: 20120825
  Serious: Yes (Other)
  Sender: FDA-Public Use
  Company Number: None

PATIENT
  Age: 73 Year
  Sex: Female
  Weight: 84.8226 kg

DRUGS (1)
  1. LOTREL [Suspect]
     Indication: HYPERTENSION
     Dosage: 10/20 1 A DAY PO
     Route: 048
     Dates: start: 20120527, end: 20120620

REACTIONS (8)
  - URTICARIA [None]
  - PRODUCT QUALITY ISSUE [None]
  - PRURITUS [None]
  - VISUAL ACUITY REDUCED [None]
  - VISION BLURRED [None]
  - AGE-RELATED MACULAR DEGENERATION [None]
  - PRODUCT SUBSTITUTION ISSUE [None]
  - PRODUCT FORMULATION ISSUE [None]
